FAERS Safety Report 9515498 (Version 2)
Quarter: 2014Q1

REPORT INFORMATION
  Report Type: Spontaneous
  Country: US (occurrence: None)
  Receive Date: 20130305
  Receipt Date: 20140306
  Transmission Date: 20141002
  Serious: Yes (Hospitalization, Other)
  Sender: FDA-Public Use
  Company Number: 163-21880-12112589

PATIENT
  Age: 78 Year
  Sex: Female

DRUGS (11)
  1. REVLIMID (LENALIDOMIDE) (10 MILLIGRAM, CAPSULES) [Suspect]
     Indication: PLASMA CELL MYELOMA
     Dosage: 10 MG, 14 IN 28 D, PO
     Route: 048
     Dates: start: 200906, end: 20121112
  2. COUMADIN (WARFARIN SODIUM) [Concomitant]
  3. DIFLUCAN (FLUCONAZOLE) [Concomitant]
  4. ACYCLOVIR (ACICLOVIR) (ACICLOVIR) [Concomitant]
  5. ANASTROZOLE [Concomitant]
  6. COZAAR (LOSARTAN POTASSIUM) (50 MILLIGRAM, TABLETS) (LOSARTAN POTASSIUM) [Concomitant]
  7. POTASSIUM [Concomitant]
  8. DEXAMETHASONE [Concomitant]
  9. MIRALAX (MACROGOL) [Concomitant]
  10. FOSAMAX (ALENDRONATE SODIUM) [Concomitant]
  11. VITAMIN D (ERGOCALCIFEROL) [Concomitant]

REACTIONS (4)
  - Pneumonia [None]
  - Blood count abnormal [None]
  - Neutropenia [None]
  - Renal failure acute [None]
